FAERS Safety Report 20258262 (Version 1)
Quarter: 2021Q4

REPORT INFORMATION
  Report Type: Spontaneous
  Country: IN (occurrence: IN)
  Receive Date: 20211230
  Receipt Date: 20211230
  Transmission Date: 20220303
  Serious: Yes (Death, Hospitalization, Other)
  Sender: FDA-Public Use
  Company Number: IN-LUPIN PHARMACEUTICALS INC.-2021-25927

PATIENT
  Age: 65 Year
  Sex: Female

DRUGS (2)
  1. RABEPRAZOLE [Suspect]
     Active Substance: RABEPRAZOLE
     Indication: Gastrooesophageal reflux disease
     Dosage: UNK (FOR ALMOST A YEAR ALONG WITH PANTOPRAZOLE)
     Route: 065
  2. PANTOPRAZOLE [Suspect]
     Active Substance: PANTOPRAZOLE
     Indication: Gastrooesophageal reflux disease
     Dosage: UNK ( FOR ALMOST ONE YEAR ALONG WITH RABEPRAZOLE)
     Route: 065

REACTIONS (3)
  - Candida sepsis [Fatal]
  - Candida infection [Fatal]
  - Gastric perforation [Fatal]
